FAERS Safety Report 18785569 (Version 1)
Quarter: 2021Q1

REPORT INFORMATION
  Report Type: Other
  Country: US (occurrence: US)
  Receive Date: 20210125
  Receipt Date: 20210125
  Transmission Date: 20210419
  Serious: No
  Sender: FDA-Public Use
  Company Number: US-ROCHE-2573889

PATIENT
  Age: 40 Year
  Sex: Male

DRUGS (2)
  1. BORTEZOMIB. [Concomitant]
     Active Substance: BORTEZOMIB
  2. RITUXAN [Suspect]
     Active Substance: RITUXIMAB
     Indication: ENCEPHALITIS AUTOIMMUNE
     Route: 065

REACTIONS (1)
  - Drug ineffective [Unknown]
